FAERS Safety Report 15797270 (Version 1)
Quarter: 2019Q1

REPORT INFORMATION
  Report Type: Spontaneous
  Country: DE (occurrence: DE)
  Receive Date: 20190108
  Receipt Date: 20190108
  Transmission Date: 20190417
  Serious: Yes (Hospitalization, Disabling)
  Sender: FDA-Public Use
  Company Number: DE-ROCHE-2241012

PATIENT
  Age: 40 Year
  Sex: Male
  Weight: 80 kg

DRUGS (1)
  1. MABTHERA [Suspect]
     Active Substance: RITUXIMAB
     Indication: NODULAR LYMPHOCYTE PREDOMINANT HODGKIN LYMPHOMA
     Route: 042
     Dates: start: 201206, end: 201207

REACTIONS (5)
  - Fungal infection [Unknown]
  - Infection susceptibility increased [Unknown]
  - Pneumonia [Unknown]
  - Immunodeficiency [Unknown]
  - Borrelia infection [Unknown]

NARRATIVE: CASE EVENT DATE: 2016
